FAERS Safety Report 4548011-X (Version None)
Quarter: 2004Q4

REPORT INFORMATION
  Report Type: 
  Country: None (occurrence: None)
  Receive Date: 20041227
  Receipt Date: 20040922
  Transmission Date: 20050328
  Serious: No
  Sender: FDA-Public Use
  Company Number: 04P-163-0274133-00

PATIENT
  Age: 60 Year
  Sex: Female
  Weight: 72.5755 kg

DRUGS (9)
  1. HUMIRA [Suspect]
     Indication: RHEUMATOID ARTHRITIS
     Dosage: 40 MG, 1 IN 2 WK, SUBCUTANEOUS
     Route: 058
     Dates: start: 20040907
  2. DESIPRAMINE [Concomitant]
  3. BUCINDOLOL HYDROCHLORIDE [Concomitant]
  4. GABAPENTIN [Concomitant]
  5. LEFLUNOMIDE [Concomitant]
  6. ESTROGENS CONJUGATED [Concomitant]
  7. CANDESARTAN CILEXETIL [Concomitant]
  8. THYROID TAB [Concomitant]
  9. FOLIC ACID [Concomitant]

REACTIONS (4)
  - HEADACHE [None]
  - HYPOAESTHESIA [None]
  - MUSCULOSKELETAL STIFFNESS [None]
  - SWELLING [None]
